FAERS Safety Report 24901291 (Version 1)
Quarter: 2025Q1

REPORT INFORMATION
  Report Type: Spontaneous
  Country: TH (occurrence: TH)
  Receive Date: 20250129
  Receipt Date: 20250129
  Transmission Date: 20250409
  Serious: Yes (Other)
  Sender: PFIZER
  Company Number: TH-PFIZER INC-PV202500011327

PATIENT
  Age: 71 Year
  Sex: Male

DRUGS (1)
  1. INLYTA [Suspect]
     Active Substance: AXITINIB
     Indication: Renal cell carcinoma
     Dosage: 10 MG, 2X/DAY
     Route: 048
     Dates: start: 20240123, end: 20250123

REACTIONS (3)
  - Leukopenia [Unknown]
  - Drug hypersensitivity [Unknown]
  - Rash [Unknown]
